FAERS Safety Report 5967327-3 (Version None)
Quarter: 2008Q4

REPORT INFORMATION
  Report Type: 
  Country: None (occurrence: None)
  Receive Date: 20081125
  Receipt Date: 20081008
  Transmission Date: 20090506
  Serious: No
  Sender: FDA-Public Use
  Company Number: US-AMGEN-KDL312400

PATIENT
  Sex: Female

DRUGS (3)
  1. ENBREL [Suspect]
     Indication: RHEUMATOID ARTHRITIS
     Route: 058
     Dates: start: 20061001
  2. METHOTREXATE [Concomitant]
     Dates: start: 20000101
  3. ARAVA [Concomitant]
     Dates: start: 20000101

REACTIONS (3)
  - ACCIDENTAL NEEDLE STICK [None]
  - PUNCTURE SITE PAIN [None]
  - WOUND HAEMORRHAGE [None]
